FAERS Safety Report 23472346 (Version 1)
Quarter: 2024Q1

REPORT INFORMATION
  Report Type: Spontaneous
  Country: US (occurrence: None)
  Receive Date: 20240202
  Receipt Date: 20240202
  Transmission Date: 20240410
  Serious: Yes (Other)
  Sender: FDA-Public Use
  Company Number: None

PATIENT
  Age: 54 Year
  Sex: Female

DRUGS (6)
  1. QELBREE [Suspect]
     Active Substance: VILOXAZINE HYDROCHLORIDE
  2. ALPRAZOLAM [Concomitant]
     Active Substance: ALPRAZOLAM
  3. LOSARTAN [Concomitant]
     Active Substance: LOSARTAN
  4. OMEGA-3 ACIDS [Concomitant]
     Active Substance: OMEGA-3 FATTY ACIDS
  5. VITAMIN D3 [Concomitant]
     Active Substance: CHOLECALCIFEROL
  6. VITAMINS [Concomitant]
     Active Substance: VITAMINS

REACTIONS (12)
  - Emotional disorder [None]
  - Irritability [None]
  - Headache [None]
  - Mood swings [None]
  - Fatigue [None]
  - Fatigue [None]
  - Suicidal ideation [None]
  - Blood pressure increased [None]
  - Dry mouth [None]
  - Constipation [None]
  - Insomnia [None]
  - Disease risk factor [None]

NARRATIVE: CASE EVENT DATE: 20231201
